FAERS Safety Report 21542320 (Version 2)
Quarter: 2022Q4

REPORT INFORMATION
  Report Type: Report from Study
  Country: CA (occurrence: CA)
  Receive Date: 20221102
  Receipt Date: 20221206
  Transmission Date: 20230113
  Serious: Yes (Other)
  Sender: FDA-Public Use
  Company Number: CA-OTSUKA-2022_050139

PATIENT
  Sex: Female

DRUGS (1)
  1. CEDAZURIDINE\DECITABINE [Suspect]
     Active Substance: CEDAZURIDINE\DECITABINE
     Indication: Myelodysplastic syndrome
     Dosage: UNK
     Route: 065
     Dates: start: 20221020

REACTIONS (9)
  - Transfusion [Unknown]
  - Movement disorder [Unknown]
  - Impaired self-care [Unknown]
  - Fear of death [Unknown]
  - Abdominal discomfort [Unknown]
  - Pain [Unknown]
  - Headache [Unknown]
  - Diarrhoea [Recovered/Resolved]
  - Therapy interrupted [Unknown]
